FAERS Safety Report 4562548-9 (Version None)
Quarter: 2005Q1

REPORT INFORMATION
  Report Type: 
  Country: None (occurrence: None)
  Receive Date: 20050124
  Receipt Date: 20050106
  Transmission Date: 20050727
  Serious: Yes (Other)
  Sender: FDA-Public Use
  Company Number: EM2005-0018

PATIENT
  Age: 77 Year
  Sex: Male

DRUGS (3)
  1. PROLEUKIN [Suspect]
     Indication: RENAL CELL CARCINOMA STAGE UNSPECIFIED
     Dosage: 22 MIU, QD; SUBCUTAN. (SEE IMAGE)
     Route: 058
  2. PROLEUKIN [Suspect]
     Indication: RENAL CELL CARCINOMA STAGE UNSPECIFIED
     Dosage: 22 MIU, QD; SUBCUTAN. (SEE IMAGE)
     Route: 058
  3. INTERFERON ALFA [Concomitant]

REACTIONS (3)
  - DEHYDRATION [None]
  - FATIGUE [None]
  - HEPATIC STEATOSIS [None]
